FAERS Safety Report 6714994-2 (Version None)
Quarter: 2010Q2

REPORT INFORMATION
  Report Type: 
  Country: None (occurrence: None)
  Receive Date: 20100507
  Receipt Date: 20100430
  Transmission Date: 20101027
  Serious: Yes (Other)
  Sender: FDA-Public Use
  Company Number: AU-ASTRAZENECA-2010SE19838

PATIENT
  Age: 30 Year
  Sex: Female

DRUGS (4)
  1. BUPIVACAINE HCL [Suspect]
     Indication: EPIDURAL ANAESTHESIA
     Dosage: TEST DOSE
     Route: 008
  2. BUPIVACAINE HCL [Suspect]
     Dosage: 37.5 MG WAS ADMINISTERED IN 5 ML INCREMENTS
     Route: 008
  3. BUPIVACAINE HCL [Suspect]
     Dosage: FURTHER 5 ML INCREMENT (12.5 MG) WAS ADMINISTERED
     Route: 008
  4. BECLOMETHASONE DIPROPIONATE [Concomitant]
     Indication: ASTHMA
     Route: 055

REACTIONS (1)
  - RESPIRATORY FAILURE [None]
